FAERS Safety Report 8535062 (Version 3)
Quarter: 2013Q2

REPORT INFORMATION
  Report Type: Spontaneous
  Country: US (occurrence: None)
  Receive Date: 20120327
  Receipt Date: 20120709
  Transmission Date: 20140414
  Serious: Yes (Other)
  Sender: FDA-Public Use
  Company Number: PHEH2009US17138

PATIENT
  Age: 74 Year
  Sex: Male
  Weight: 103.4 kg

DRUGS (12)
  1. GLEEVEC [Suspect]
     Indication: CHRONIC MYELOID LEUKAEMIA
     Route: 048
     Dates: start: 20081001
  2. NEVANAC (NEPAFENAC) [Concomitant]
  3. LOPRESSOR [Concomitant]
  4. ASPIRIN (ACETYLSALICYLIC ACID) [Concomitant]
  5. COUMADIN [Concomitant]
  6. ZOCOR [Concomitant]
  7. DEMADEX [Concomitant]
  8. PHENERGAN [Concomitant]
  9. PREDNISOLONE ACETATE [Concomitant]
  10. NEURONTIN [Concomitant]
  11. VYTORIN [Concomitant]
  12. VALTREX [Concomitant]

REACTIONS (4)
  - HERPES ZOSTER [None]
  - MUSCLE SPASMS [None]
  - NAUSEA [None]
  - VITAMIN D DEFICIENCY [None]
